FAERS Safety Report 5920131-4 (Version None)
Quarter: 2008Q4

REPORT INFORMATION
  Report Type: 
  Country: None (occurrence: None)
  Receive Date: 20081016
  Receipt Date: 20081007
  Transmission Date: 20090506
  Serious: Yes (Other)
  Sender: FDA-Public Use
  Company Number: GB-TEVA-178649ISR

PATIENT
  Age: 66 Year
  Sex: Male

DRUGS (10)
  1. AMLODIPINE [Suspect]
  2. METFORMIN HYDROCHLORIDE [Suspect]
  3. NIZATIDINE [Suspect]
  4. PAROXETINE HCL [Suspect]
  5. TEMAZEPAM [Suspect]
  6. TRAZODONE HCL [Suspect]
  7. ACETYLSALICYLIC ACID SRT [Suspect]
  8. CANDESARTAN [Suspect]
  9. INSULIN [Suspect]
  10. DIAZEPAM [Suspect]

REACTIONS (1)
  - DIABETES MELLITUS INADEQUATE CONTROL [None]
